FAERS Safety Report 6991506-X (Version None)
Quarter: 2010Q3

REPORT INFORMATION
  Report Type: 
  Country: None (occurrence: None)
  Receive Date: 20100917
  Receipt Date: 20100909
  Transmission Date: 20110219
  Serious: Yes (Hospitalization)
  Sender: FDA-Public Use
  Company Number: US-BIOGENIDEC-2010BI024526

PATIENT
  Age: 51 Year
  Sex: Female
  Weight: 59 kg

DRUGS (2)
  1. TYSABRI [Suspect]
     Indication: MULTIPLE SCLEROSIS
     Route: 042
     Dates: start: 20070718
  2. MEDICATION (NOS) [Concomitant]
     Indication: TYPE 1 DIABETES MELLITUS

REACTIONS (5)
  - BLOOD COUNT ABNORMAL [None]
  - DYSPNOEA [None]
  - HYPOTENSION [None]
  - INFECTION [None]
  - MYOCARDIAL INFARCTION [None]
